FAERS Safety Report 23977928 (Version 1)
Quarter: 2024Q2

REPORT INFORMATION
  Report Type: Spontaneous
  Country: US (occurrence: US)
  Receive Date: 20240614
  Receipt Date: 20240614
  Transmission Date: 20240716
  Serious: No
  Sender: FDA-Public Use
  Company Number: ENDB23-03866

PATIENT
  Age: 6 Year
  Sex: Female

DRUGS (6)
  1. SUPPRELIN LA [Suspect]
     Active Substance: HISTRELIN ACETATE
     Indication: Precocious puberty
     Dosage: 50 MILLIGRAM, UNKNOWN
     Route: 058
     Dates: start: 20210805
  2. SUPPRELIN LA [Suspect]
     Active Substance: HISTRELIN ACETATE
     Indication: Precocious puberty
     Dosage: 50 MILLIGRAM, UNKNOWN
     Route: 058
     Dates: start: 20210805
  3. SUPPRELIN LA [Suspect]
     Active Substance: HISTRELIN ACETATE
     Indication: Precocious puberty
     Dosage: 50 MILLIGRAM, UNKNOWN
     Route: 058
     Dates: start: 20210805
  4. SUPPRELIN LA [Suspect]
     Active Substance: HISTRELIN ACETATE
     Dosage: 50 MILLIGRAM, UNKNOWN
     Route: 058
     Dates: start: 20220906
  5. SUPPRELIN LA [Suspect]
     Active Substance: HISTRELIN ACETATE
     Dosage: 50 MILLIGRAM, UNKNOWN
     Route: 058
     Dates: start: 20220906
  6. SUPPRELIN LA [Suspect]
     Active Substance: HISTRELIN ACETATE
     Dosage: 50 MILLIGRAM, UNKNOWN
     Route: 058
     Dates: start: 20220906

REACTIONS (4)
  - Decreased appetite [Not Recovered/Not Resolved]
  - Weight increased [Not Recovered/Not Resolved]
  - Mood swings [Not Recovered/Not Resolved]
  - Incorrect product administration duration [Not Recovered/Not Resolved]

NARRATIVE: CASE EVENT DATE: 20220801
